FAERS Safety Report 11704225 (Version 1)
Quarter: 2015Q4

REPORT INFORMATION
  Report Type: Spontaneous
  Country: US (occurrence: None)
  Receive Date: 20151105
  Receipt Date: 20151105
  Transmission Date: 20160304
  Serious: Yes (Life-Threatening, Hospitalization)
  Sender: FDA-Public Use
  Company Number: None

PATIENT
  Age: 86 Year
  Sex: Female
  Weight: 73 kg

DRUGS (11)
  1. REGULAR HUMAN INSULIN [Concomitant]
  2. ATORVASTATIN [Concomitant]
     Active Substance: ATORVASTATIN
  3. METOPROLOL [Concomitant]
     Active Substance: METOPROLOL
  4. CLOPIDOGREL [Concomitant]
     Active Substance: CLOPIDOGREL BISULFATE
  5. LANTUS [Concomitant]
     Active Substance: INSULIN GLARGINE
  6. ALDACTONE [Concomitant]
     Active Substance: SPIRONOLACTONE
  7. AMIDARONE [Concomitant]
     Active Substance: AMIODARONE
  8. PEPCID [Concomitant]
     Active Substance: FAMOTIDINE
  9. LEVOTHYROXINE. [Concomitant]
     Active Substance: LEVOTHYROXINE
  10. RIVAROXABAN 15MG [Suspect]
     Active Substance: RIVAROXABAN
     Indication: ATRIAL FIBRILLATION
     Route: 048
     Dates: start: 20141110, end: 20151103
  11. BUMEX [Concomitant]
     Active Substance: BUMETANIDE

REACTIONS (2)
  - Haematoma [None]
  - Pharyngeal haematoma [None]

NARRATIVE: CASE EVENT DATE: 20151103
